APPROVED DRUG PRODUCT: BYFAVO
Active Ingredient: REMIMAZOLAM BESYLATE
Strength: EQ 20MG BASE/VIAL
Dosage Form/Route: POWDER;INTRAVENOUS
Application: N212295 | Product #001
Applicant: ACACIA PHARMA LTD
Approved: Oct 6, 2020 | RLD: Yes | RS: Yes | Type: RX

PATENTS:
Patent 10961250 | Expires: Jul 10, 2027
Patent 10472365 | Expires: Jul 10, 2027
Patent 9827251 | Expires: Jan 13, 2034
Patent 9737547 | Expires: Nov 7, 2031
Patent 10052334 | Expires: Nov 7, 2031
Patent 10195210 | Expires: Nov 7, 2031
Patent 10342800 | Expires: Nov 7, 2031
Patent 9561236 | Expires: Apr 30, 2033
Patent 10722522 | Expires: Nov 7, 2031
Patent 9777007 | Expires: Jul 10, 2027
Patent 9914738 | Expires: Jul 10, 2027